FAERS Safety Report 13709615 (Version 1)
Quarter: 2017Q3

REPORT INFORMATION
  Report Type: Spontaneous
  Country: US (occurrence: US)
  Receive Date: 20170703
  Receipt Date: 20170703
  Transmission Date: 20171127
  Serious: No
  Sender: FDA-Public Use
  Company Number: US-PHARMING GROUP N.V.-PHAUS2017000035

PATIENT

DRUGS (1)
  1. RUCONEST [Suspect]
     Active Substance: HUMAN C1-ESTERASE INHIBITOR
     Indication: HEREDITARY ANGIOEDEMA
     Dosage: 4200 IU, ONCE OR TWICE A WEEK
     Route: 042
     Dates: start: 20170120

REACTIONS (4)
  - Arthralgia [Unknown]
  - Drug ineffective for unapproved indication [Unknown]
  - Drug dose omission [Unknown]
  - Bone pain [Unknown]

NARRATIVE: CASE EVENT DATE: 20170127
